FAERS Safety Report 4486725-0 (Version None)
Quarter: 2004Q4

REPORT INFORMATION
  Report Type: 
  Country: None (occurrence: None)
  Receive Date: 20041022
  Receipt Date: 20041011
  Transmission Date: 20050328
  Serious: Yes (Life-Threatening, Hospitalization)
  Sender: FDA-Public Use
  Company Number: 6011043

PATIENT
  Age: 79 Year
  Sex: Female

DRUGS (5)
  1. DETENSIEL (10 MG) (BISOPROLOL) [Suspect]
     Dosage: 5 MG 1 D ORAL
     Route: 048
  2. LEVOTHYROXINE SODIUM [Concomitant]
  3. TEGRETOL [Concomitant]
  4. COAPROVEL (HYDROCHLOROTHIAZIDE, IRBESARTAN) [Concomitant]
  5. PLAVIX [Concomitant]

REACTIONS (3)
  - CONVULSION [None]
  - HYPERTENSION [None]
  - MEDICATION ERROR [None]
